FAERS Safety Report 7600729-8 (Version None)
Quarter: 2011Q2

REPORT INFORMATION
  Report Type: 
  Country: None (occurrence: None)
  Receive Date: 20110627
  Receipt Date: 20101130
  Transmission Date: 20111010
  Serious: Yes (Other)
  Sender: FDA-Public Use
  Company Number: APP201001059

PATIENT
  Age: 42 Year
  Sex: Female

DRUGS (4)
  1. PAINBUSTER PAIN MANAGEMENT SYSTEM PAIN PUMP [Suspect]
     Indication: MUSCULOSKELETAL PAIN
     Dosage: RIGHT SHOULDER
     Dates: start: 20030911
  2. PAINBUSTER PAIN MANAGEMENT SYSTEM PAIN PUMP [Suspect]
     Indication: MUSCULOSKELETAL PAIN
     Dosage: RIGHT SHOULDER
     Dates: start: 20040513
  3. MORPHINE SULFATE INJ [Concomitant]
  4. SENSORCAINE [Suspect]
     Indication: MUSCULOSKELETAL PAIN
     Dosage: 270 ML, CONTINUOUS VIA PUMP RIGHT SHOULDER, INTRA-ARTICULAR
     Route: 014
     Dates: start: 20030911

REACTIONS (1)
  - CHONDROLYSIS [None]
